FAERS Safety Report 18715013 (Version 2)
Quarter: 2021Q1

REPORT INFORMATION
  Report Type: Spontaneous
  Country: US (occurrence: US)
  Receive Date: 20210108
  Receipt Date: 20210122
  Transmission Date: 20210419
  Serious: No
  Sender: FDA-Public Use
  Company Number: US-HORIZON-2021HZN00093

PATIENT
  Age: 59 Year
  Sex: Male
  Weight: 136.1 kg

DRUGS (3)
  1. RESTASIS [Concomitant]
     Active Substance: CYCLOSPORINE
  2. OXYGEN. [Concomitant]
     Active Substance: OXYGEN
  3. TEPEZZA [Suspect]
     Active Substance: TEPROTUMUMAB-TRBW
     Indication: TOXIC GOITRE
     Route: 050
     Dates: start: 20201029, end: 20201222

REACTIONS (2)
  - Vertigo [Not Recovered/Not Resolved]
  - Product supply issue [Unknown]
